FAERS Safety Report 14774021 (Version 4)
Quarter: 2018Q2

REPORT INFORMATION
  Report Type: Spontaneous
  Country: FR (occurrence: FR)
  Receive Date: 20180418
  Receipt Date: 20180508
  Transmission Date: 20180711
  Serious: Yes (Other)
  Sender: FDA-Public Use
  Company Number: FR-PFIZER INC-2018152556

PATIENT
  Age: 23 Year
  Sex: Male

DRUGS (2)
  1. CYTARABINE. [Suspect]
     Active Substance: CYTARABINE
     Indication: NON-HODGKIN^S LYMPHOMA
     Dosage: 24000 MG/M2, FREQ: TOTAL
     Route: 065
  2. METHOTREXATE SODIUM. [Suspect]
     Active Substance: METHOTREXATE SODIUM
     Indication: NON-HODGKIN^S LYMPHOMA
     Dosage: 12000 MG/M2, FREQ: TOTAL (8 MONTHS)
     Route: 065

REACTIONS (2)
  - Acute promyelocytic leukaemia [Recovered/Resolved]
  - Second primary malignancy [Recovered/Resolved]
